FAERS Safety Report 4884994-6 (Version None)
Quarter: 2006Q1

REPORT INFORMATION
  Report Type: 
  Country: None (occurrence: None)
  Receive Date: 20060119
  Receipt Date: 20050914
  Transmission Date: 20060701
  Serious: Yes (Hospitalization)
  Sender: FDA-Public Use
  Company Number: US-MERCK-0509USA01949

PATIENT
  Age: 69 Year
  Sex: Female
  Weight: 73 kg

DRUGS (13)
  1. VIOXX [Suspect]
     Indication: OSTEOARTHRITIS
     Route: 048
     Dates: start: 20000926, end: 20040120
  2. ZOLOFT [Concomitant]
     Route: 065
  3. CELEXA [Concomitant]
     Route: 065
     Dates: start: 19990101, end: 20030101
  4. FOSAMAX [Concomitant]
     Route: 065
  5. PREMARIN [Concomitant]
     Route: 065
  6. EFFEXOR XR [Concomitant]
     Route: 065
     Dates: start: 19980101
  7. ACIPHEX [Concomitant]
     Route: 065
  8. DYAZIDE [Concomitant]
     Indication: FLUID RETENTION
     Route: 065
     Dates: start: 20030804, end: 20030901
  9. PROTONIX [Concomitant]
     Route: 065
  10. TRICOR [Concomitant]
     Route: 065
  11. FUROSEMIDE [Concomitant]
     Route: 065
     Dates: start: 20000101, end: 20040901
  12. TRICOR [Concomitant]
     Route: 065
     Dates: start: 20020603, end: 20040201
  13. PRAVACHOL [Concomitant]
     Route: 065
     Dates: start: 20000101

REACTIONS (19)
  - ACUTE MYOCARDIAL INFARCTION [None]
  - ALANINE AMINOTRANSFERASE INCREASED [None]
  - ANAEMIA [None]
  - ASPARTATE AMINOTRANSFERASE INCREASED [None]
  - BLOOD CREATININE INCREASED [None]
  - BLOOD PRESSURE INCREASED [None]
  - BLOOD UREA INCREASED [None]
  - CARDIAC FAILURE CONGESTIVE [None]
  - CORONARY ARTERY DISEASE [None]
  - DEPRESSION [None]
  - EJECTION FRACTION DECREASED [None]
  - EMOTIONAL DISTRESS [None]
  - FALL [None]
  - HYPERTRIGLYCERIDAEMIA [None]
  - INJURY [None]
  - LEFT VENTRICULAR END-DIASTOLIC PRESSURE INCREASED [None]
  - MITRAL VALVE INCOMPETENCE [None]
  - RENAL DISORDER [None]
  - VENTRICULAR TACHYCARDIA [None]
